FAERS Safety Report 20818284 (Version 1)
Quarter: 2022Q2

REPORT INFORMATION
  Report Type: Spontaneous
  Country: FR (occurrence: FR)
  Receive Date: 20220512
  Receipt Date: 20220512
  Transmission Date: 20220720
  Serious: Yes (Hospitalization)
  Sender: FDA-Public Use
  Company Number: None

PATIENT
  Age: 38 Year
  Sex: Male

DRUGS (5)
  1. CLONAZEPAM [Suspect]
     Active Substance: CLONAZEPAM
     Dosage: UNK
     Route: 065
  2. BROMAZEPAM [Suspect]
     Active Substance: BROMAZEPAM
     Dosage: UNK
     Route: 065
  3. LYRICA [Suspect]
     Active Substance: PREGABALIN
     Dosage: UNK
     Route: 065
  4. TRAMADOL [Suspect]
     Active Substance: TRAMADOL
     Indication: Pain
     Dosage: UNK
     Route: 065
  5. DESLORATADINE [Suspect]
     Active Substance: DESLORATADINE
     Dosage: UNK
     Route: 065

REACTIONS (7)
  - Drug abuse [Recovered/Resolved]
  - Pneumonia aspiration [Recovering/Resolving]
  - Hypotension [Recovered/Resolved]
  - Altered state of consciousness [Recovered/Resolved]
  - Multisystem inflammatory syndrome [Unknown]
  - Hyperleukocytosis [Unknown]
  - Overdose [Unknown]

NARRATIVE: CASE EVENT DATE: 20220401
